FAERS Safety Report 8977922 (Version 1)
Quarter: 2012Q4

REPORT INFORMATION
  Report Type: Report from Study
  Country: US (occurrence: US)
  Receive Date: 20121220
  Receipt Date: 20121220
  Transmission Date: 20130627
  Serious: Yes (Hospitalization)
  Sender: FDA-Public Use
  Company Number: US-ROCHE-1170489

PATIENT
  Sex: Female
  Weight: 138 kg

DRUGS (14)
  1. OMALIZUMAB [Suspect]
     Indication: INFLAMMATION
     Dosage: Last dose prior to SAE:04/Feb/2009
     Route: 058
     Dates: start: 20080423
  2. SYMBICORT [Concomitant]
  3. LOPRESSOR [Concomitant]
  4. NORVASC [Concomitant]
  5. ZOLOFT [Concomitant]
  6. SYNTHROID [Concomitant]
  7. COZARTAN [Concomitant]
  8. ACIPHEX [Concomitant]
  9. VYTORIN [Concomitant]
  10. SEQUILAR [Concomitant]
  11. COMBIVENT [Concomitant]
  12. ASPIRIN [Concomitant]
  13. CLARINEX [Concomitant]
  14. METFORMIN [Concomitant]

REACTIONS (1)
  - Aortic aneurysm [Unknown]
